FAERS Safety Report 7362675-7 (Version None)
Quarter: 2011Q1

REPORT INFORMATION
  Report Type: 
  Country: None (occurrence: None)
  Receive Date: 20110321
  Receipt Date: 20110311
  Transmission Date: 20110831
  Serious: Yes (Hospitalization)
  Sender: FDA-Public Use
  Company Number: US-BIOGENIDEC-2011BI009446

PATIENT
  Age: 50 Year
  Sex: Male
  Weight: 100 kg

DRUGS (3)
  1. BENICAR [Concomitant]
     Indication: BLOOD PRESSURE
  2. OXYBUTYNIN [Concomitant]
     Indication: BLADDER DISORDER
     Dates: start: 20050101
  3. TYSABRI [Suspect]
     Indication: MULTIPLE SCLEROSIS
     Route: 042
     Dates: start: 20081001

REACTIONS (5)
  - RESTLESS LEGS SYNDROME [None]
  - PAIN IN EXTREMITY [None]
  - BACK PAIN [None]
  - INTERVERTEBRAL DISC PROTRUSION [None]
  - CALCINOSIS [None]
